FAERS Safety Report 7386154-6 (Version None)
Quarter: 2011Q1

REPORT INFORMATION
  Report Type: 
  Country: None (occurrence: None)
  Receive Date: 20110323
  Receipt Date: 20110309
  Transmission Date: 20110831
  Serious: Yes (Hospitalization)
  Sender: FDA-Public Use
  Company Number: 2011SP011001

PATIENT
  Age: 68 Year
  Sex: Female

DRUGS (2)
  1. RIBAVIRIN [Suspect]
     Indication: HEPATITIS C
     Dates: start: 20080902, end: 20090201
  2. INTERFERON ALFA [Suspect]
     Indication: HEPATITIS C
     Dates: start: 20080902, end: 20090201

REACTIONS (4)
  - NEPHROTIC SYNDROME [None]
  - RENAL FAILURE ACUTE [None]
  - FOCAL SEGMENTAL GLOMERULOSCLEROSIS [None]
  - HAEMODIALYSIS [None]
